FAERS Safety Report 7356467-2 (Version None)
Quarter: 2011Q1

REPORT INFORMATION
  Report Type: 
  Country: None (occurrence: None)
  Receive Date: 20110316
  Receipt Date: 20110310
  Transmission Date: 20110831
  Serious: Yes (Hospitalization, Other)
  Sender: FDA-Public Use
  Company Number: IE-ELI_LILLY_AND_COMPANY-IE201102002358

PATIENT
  Sex: Female

DRUGS (5)
  1. FORTEO [Suspect]
     Indication: OSTEOPOROSIS
     Dosage: 20 UG, UNK
     Dates: start: 20110202
  2. GALFER [Concomitant]
  3. OXYCONTIN [Concomitant]
  4. OXYNORM [Concomitant]
  5. SERETIDE [Concomitant]

REACTIONS (6)
  - KIDNEY INFECTION [None]
  - DEHYDRATION [None]
  - MALAISE [None]
  - SKIN ULCER [None]
  - TREMOR [None]
  - SENSATION OF HEAVINESS [None]
